FAERS Safety Report 4518837-7 (Version None)
Quarter: 2004Q4

REPORT INFORMATION
  Report Type: 
  Country: None (occurrence: None)
  Receive Date: 20041206
  Receipt Date: 20041122
  Transmission Date: 20050328
  Serious: Yes (Hospitalization)
  Sender: FDA-Public Use
  Company Number: JP-JNJFOC-20041006963

PATIENT
  Sex: Male
  Weight: 57 kg

DRUGS (8)
  1. REMICADE [Suspect]
     Route: 042
  2. REMICADE [Suspect]
     Route: 042
  3. REMICADE [Suspect]
     Route: 042
  4. REMICADE [Suspect]
     Indication: RHEUMATOID ARTHRITIS
     Route: 042
  5. RHEUMATREX [Suspect]
     Route: 049
  6. RHEUMATREX [Suspect]
     Route: 049
  7. RHEUMATREX [Suspect]
     Indication: UNEVALUABLE EVENT
     Route: 049
  8. INH [Concomitant]
     Route: 049

REACTIONS (3)
  - ATYPICAL MYCOBACTERIAL INFECTION [None]
  - COUGH [None]
  - HERPES ZOSTER [None]
